APPROVED DRUG PRODUCT: RAMIPRIL
Active Ingredient: RAMIPRIL
Strength: 5MG
Dosage Form/Route: CAPSULE;ORAL
Application: A079116 | Product #003 | TE Code: AB
Applicant: COREPHARMA LLC
Approved: Jun 20, 2008 | RLD: No | RS: No | Type: RX